FAERS Safety Report 9103298 (Version 1)
Quarter: 2013Q1

REPORT INFORMATION
  Report Type: Spontaneous
  Country: US (occurrence: US)
  Receive Date: 20130219
  Receipt Date: 20130219
  Transmission Date: 20140127
  Serious: Yes (Other)
  Sender: FDA-Public Use
  Company Number: US-UCBSA-078335

PATIENT
  Sex: Female

DRUGS (1)
  1. VIMPAT [Suspect]

REACTIONS (12)
  - Weight decreased [Unknown]
  - Speech disorder [Unknown]
  - Anxiety [Unknown]
  - Activities of daily living impaired [Unknown]
  - Dysgraphia [Unknown]
  - Insomnia [Unknown]
  - Palpitations [Unknown]
  - Restlessness [Unknown]
  - Alopecia [Unknown]
  - Muscle spasms [Unknown]
  - Agitation [Unknown]
  - Mood swings [Unknown]
